FAERS Safety Report 5889534-0 (Version None)
Quarter: 2008Q3

REPORT INFORMATION
  Report Type: 
  Country: None (occurrence: None)
  Receive Date: 20080919
  Receipt Date: 20080909
  Transmission Date: 20090109
  Serious: Yes (Hospitalization)
  Sender: FDA-Public Use
  Company Number: US-ELI_LILLY_AND_COMPANY-US200809002150

PATIENT
  Age: 60 Year
  Sex: Female

DRUGS (3)
  1. GEMZAR [Suspect]
     Indication: NON-SMALL CELL LUNG CANCER
     Dates: start: 20080501
  2. CISPLATIN [Concomitant]
     Indication: NON-SMALL CELL LUNG CANCER
  3. AVASTIN [Concomitant]
     Indication: NON-SMALL CELL LUNG CANCER

REACTIONS (9)
  - BLOOD PRESSURE INCREASED [None]
  - CONVULSION [None]
  - FATIGUE [None]
  - FLUID INTAKE REDUCED [None]
  - FULL BLOOD COUNT ABNORMAL [None]
  - HAEMOGLOBIN DECREASED [None]
  - LABORATORY TEST ABNORMAL [None]
  - MALNUTRITION [None]
  - NAUSEA [None]
